FAERS Safety Report 10012613 (Version 4)
Quarter: 2014Q2

REPORT INFORMATION
  Report Type: Report from Study
  Country: ES (occurrence: ES)
  Receive Date: 20140314
  Receipt Date: 20140530
  Transmission Date: 20141212
  Serious: Yes (Hospitalization, Other)
  Sender: FDA-Public Use
  Company Number: ES-JNJFOC-20101201057

PATIENT
  Age: 53 Year
  Sex: Male
  Weight: 56 kg

DRUGS (15)
  1. REMICADE [Suspect]
     Indication: COLITIS ULCERATIVE
     Route: 042
     Dates: start: 20101001, end: 20101009
  2. REMICADE [Suspect]
     Indication: COLITIS ULCERATIVE
     Route: 042
  3. SALOFALK [Concomitant]
     Indication: COLITIS ULCERATIVE
     Route: 048
  4. PROCTOSTEROID [Concomitant]
     Indication: COLITIS ULCERATIVE
     Route: 054
  5. ENTECAVIR [Concomitant]
     Indication: HEPATITIS B
     Dosage: 6 MONTHS
  6. CICLOSPORIN [Concomitant]
     Indication: COLITIS ULCERATIVE
     Route: 048
     Dates: start: 20100920, end: 20100925
  7. METHYLPREDNISOLONE [Concomitant]
     Route: 042
     Dates: start: 20101015, end: 20101015
  8. CEFTAZIDIME [Concomitant]
     Indication: PROPHYLAXIS
     Route: 042
     Dates: start: 20101013, end: 20101019
  9. COTRIMOXAZOLE [Concomitant]
     Indication: TINEA VERSICOLOUR
     Route: 042
     Dates: start: 20101013, end: 20101019
  10. VANCOMYCINE [Concomitant]
     Indication: TINEA VERSICOLOUR
     Route: 042
     Dates: start: 20101013, end: 20101015
  11. FLUCONAZOLE [Concomitant]
     Indication: TINEA VERSICOLOUR
     Route: 042
     Dates: start: 20101013, end: 20101017
  12. PREDNISONE [Concomitant]
     Indication: COLITIS ULCERATIVE
     Dosage: TAPERING DOSE
     Route: 048
     Dates: start: 20101004, end: 20101006
  13. CIPROFLOXACIN [Concomitant]
     Indication: COLITIS ULCERATIVE
     Route: 048
     Dates: start: 20100928, end: 20101007
  14. METRONIDAZOLE [Concomitant]
     Indication: COLITIS ULCERATIVE
     Route: 048
     Dates: start: 20100928, end: 20101007
  15. ENTOCORT [Concomitant]
     Indication: HEPATITIS B
     Route: 048
     Dates: start: 20100930, end: 20101010

REACTIONS (4)
  - Drug ineffective [Unknown]
  - Pyrexia [Recovered/Resolved]
  - Bacteraemia [Recovered/Resolved]
  - Staphylococcal infection [Recovered/Resolved]
